FAERS Safety Report 8176875-X (Version None)
Quarter: 2012Q1

REPORT INFORMATION
  Report Type: 
  Country: None (occurrence: None)
  Receive Date: 20120124
  Receipt Date: 20110331
  Transmission Date: 20120608
  Serious: Yes (Hospitalization)
  Sender: FDA-Public Use
  Company Number: WAES 1103USA04011

PATIENT

DRUGS (1)
  1. INVANZ [Suspect]

REACTIONS (1)
  - CONVULSION [None]
